FAERS Safety Report 15230965 (Version 1)
Quarter: 2018Q3

REPORT INFORMATION
  Report Type: Spontaneous
  Country: US (occurrence: US)
  Receive Date: 20180802
  Receipt Date: 20180802
  Transmission Date: 20181010
  Serious: Yes (Other)
  Sender: FDA-Public Use
  Company Number: US-ACCORD-063222

PATIENT
  Age: 31 Year
  Sex: Female

DRUGS (8)
  1. COLACE [Concomitant]
     Active Substance: DOCUSATE SODIUM
     Dosage: STRENGTH: 250 MG?TAKE 1 BY MOUTH
     Route: 048
  2. ROXICODONE [Concomitant]
     Active Substance: OXYCODONE HYDROCHLORIDE
     Indication: PAIN
     Dosage: STRENGTH: 10 MG?TAKE 1 BY MOUTH EVERY 4 HOURS AS NEEDED
  3. DOCETAXEL ACCORD [Suspect]
     Active Substance: DOCETAXEL
     Indication: BREAST CANCER
     Dosage: EVERY THREE WEEKS?ONCE STARTING WHEN RELEASED FOR 1 HOUR
     Route: 042
     Dates: start: 20150227, end: 20150501
  4. CYTOXAN [Suspect]
     Active Substance: CYCLOPHOSPHAMIDE
     Indication: BREAST CANCER
     Dosage: ONCE STARTING WHEN RELEASED FOR 1HOUR
     Route: 042
  5. COMPAZINE [Concomitant]
     Active Substance: PROCHLORPERAZINE MALEATE
     Indication: NAUSEA
     Dosage: TAKE 1 BY MOUTH EVERY SIX HOURS AS NEEDED
     Route: 048
  6. ONDANSETRON [Concomitant]
     Active Substance: ONDANSETRON
     Dosage: STRENGTH: 8MG?INFUSE OVER 15 MINUTES 30 MINUTES, PRIOR TO CHEMO
     Route: 042
  7. DECADRON [Concomitant]
     Active Substance: DEXAMETHASONE
     Dosage: TAKE 2 TABLETS BY MOUTH (WITH MEAL) FOR 3 DAYS STARTING ONE DAY PRIOR TO DOCETAXEL TREATMENT
     Route: 048
  8. NEULASTA [Concomitant]
     Active Substance: PEGFILGRASTIM

REACTIONS (1)
  - Alopecia [Not Recovered/Not Resolved]

NARRATIVE: CASE EVENT DATE: 20151101
